FAERS Safety Report 5914561-4 (Version None)
Quarter: 2008Q4

REPORT INFORMATION
  Report Type: 
  Country: None (occurrence: None)
  Receive Date: 20081008
  Receipt Date: 20080929
  Transmission Date: 20090506
  Serious: Yes (Hospitalization)
  Sender: FDA-Public Use
  Company Number: 2008AP002595

PATIENT
  Age: 55 Year
  Sex: Female

DRUGS (1)
  1. CLARITHROMYCIN [Suspect]
     Indication: HELICOBACTER INFECTION
     Dosage: 500 MG;BID;PO
     Route: 048
     Dates: start: 20080809, end: 20080809

REACTIONS (5)
  - CHOKING SENSATION [None]
  - CIRCULATORY COLLAPSE [None]
  - FEAR OF DEATH [None]
  - FEELING ABNORMAL [None]
  - HYPERSENSITIVITY [None]
